FAERS Safety Report 4600398-5 (Version None)
Quarter: 2005Q1

REPORT INFORMATION
  Report Type: 
  Country: None (occurrence: None)
  Receive Date: 20050307
  Receipt Date: 20050303
  Transmission Date: 20050727
  Serious: Yes (Life-Threatening)
  Sender: FDA-Public Use
  Company Number: PHEH2005US02737

PATIENT
  Sex: Female

DRUGS (1)
  1. TRILEPTAL [Suspect]
     Indication: PAIN
     Dosage: 150 MG, BID
     Route: 048

REACTIONS (1)
  - ANAPHYLACTIC REACTION [None]
